FAERS Safety Report 9738270 (Version 1)
Quarter: 2013Q4

REPORT INFORMATION
  Report Type: Spontaneous
  Country: US (occurrence: US)
  Receive Date: 20131208
  Receipt Date: 20131208
  Transmission Date: 20140711
  Serious: No
  Sender: FDA-Public Use
  Company Number: US-009507513-1312USA002860

PATIENT
  Age: 55 Year
  Sex: Female

DRUGS (3)
  1. AZASITE [Suspect]
     Indication: ROSACEA
     Dosage: ONE DROP PER EYE EVERY NIGHT, ROUTE: RUBS AZASITE ON HER CLOSED EYELIDS WITH HER FINGER
     Dates: start: 201310, end: 20131203
  2. AZASITE [Suspect]
     Indication: BLEPHARITIS
  3. ADVIL [Concomitant]

REACTIONS (8)
  - Hordeolum [Not Recovered/Not Resolved]
  - Lip dry [Not Recovered/Not Resolved]
  - Nausea [Not Recovered/Not Resolved]
  - Headache [Not Recovered/Not Resolved]
  - Drug ineffective [Not Recovered/Not Resolved]
  - Eye pain [Not Recovered/Not Resolved]
  - Eye irritation [Not Recovered/Not Resolved]
  - Wrong technique in drug usage process [Unknown]
